FAERS Safety Report 5692899-6 (Version None)
Quarter: 2008Q2

REPORT INFORMATION
  Report Type: 
  Country: None (occurrence: None)
  Receive Date: 20080327
  Receipt Date: 20080219
  Transmission Date: 20081010
  Serious: Yes (Other)
  Sender: FDA-Public Use
  Company Number: A03200706692

PATIENT
  Age: 46 Year
  Sex: Male
  Weight: 104.3273 kg

DRUGS (7)
  1. AMBIEN CR [Suspect]
     Indication: ANXIETY
     Dosage: 12.5 MG HS - ORAL
     Route: 048
     Dates: start: 20071116, end: 20071120
  2. AMBIEN CR [Suspect]
     Indication: INSOMNIA
     Dosage: 12.5 MG HS - ORAL
     Route: 048
     Dates: start: 20071116, end: 20071120
  3. AMBIEN CR [Suspect]
     Indication: ANXIETY
     Dosage: 25 MG ONCE - ORAL
     Route: 048
     Dates: start: 20071101, end: 20071101
  4. AMBIEN CR [Suspect]
     Indication: INSOMNIA
     Dosage: 25 MG ONCE - ORAL
     Route: 048
     Dates: start: 20071101, end: 20071101
  5. LISINOPRIL [Concomitant]
  6. ESOMEPRAZOLE MAGNESIUM [Concomitant]
  7. DULOXETINE [Concomitant]

REACTIONS (4)
  - DRUG INEFFECTIVE [None]
  - HEADACHE [None]
  - OVERDOSE [None]
  - PANIC ATTACK [None]
